FAERS Safety Report 12890498 (Version 1)
Quarter: 2016Q4

REPORT INFORMATION
  Report Type: Spontaneous
  Country: US (occurrence: US)
  Receive Date: 20161027
  Receipt Date: 20161027
  Transmission Date: 20170207
  Serious: No
  Sender: FDA-Public Use
  Company Number: US-JAZZ-2016-US-015504

PATIENT
  Age: 43 Year
  Sex: Female

DRUGS (28)
  1. CLINDAMYCIN PHOSPHATE. [Concomitant]
     Active Substance: CLINDAMYCIN PHOSPHATE
  2. ESOMEPRAZOLE MAGNESIUM DR [Concomitant]
     Active Substance: ESOMEPRAZOLE MAGNESIUM
  3. METRONIDAZOLE. [Concomitant]
     Active Substance: METRONIDAZOLE
  4. CLOTRIMAZOLE AND BETAMETHASONE [Concomitant]
     Active Substance: BETAMETHASONE\CLOTRIMAZOLE
  5. ASPIRIN. [Concomitant]
     Active Substance: ASPIRIN
  6. AZELEX [Concomitant]
     Active Substance: AZELAIC ACID
  7. DOXYCYCLINE HYCLATE. [Concomitant]
     Active Substance: DOXYCYCLINE HYCLATE
  8. VYVANSE [Concomitant]
     Active Substance: LISDEXAMFETAMINE DIMESYLATE
  9. XYREM [Suspect]
     Active Substance: SODIUM OXYBATE
     Indication: NARCOLEPSY
     Dosage: 2.25 G, BID
     Route: 048
     Dates: start: 201608, end: 201608
  10. CALCIUM+VITAMIN D3 [Concomitant]
  11. ADAPALENE. [Concomitant]
     Active Substance: ADAPALENE
  12. ELMIRON [Concomitant]
     Active Substance: PENTOSAN POLYSULFATE SODIUM
  13. LISINOPRIL. [Concomitant]
     Active Substance: LISINOPRIL
  14. XYREM [Suspect]
     Active Substance: SODIUM OXYBATE
     Dosage: 3 G, BID
     Route: 048
     Dates: start: 201608
  15. AMLODIPINE BESYLATE. [Concomitant]
     Active Substance: AMLODIPINE BESYLATE
  16. ARIPIPRAZOLE. [Concomitant]
     Active Substance: ARIPIPRAZOLE
  17. NUVIGIL [Concomitant]
     Active Substance: ARMODAFINIL
  18. ESTRACE [Concomitant]
     Active Substance: ESTRADIOL
  19. LAMOTRIGINE. [Concomitant]
     Active Substance: LAMOTRIGINE
  20. MULTIVITAMIN [Concomitant]
     Active Substance: VITAMINS
  21. RANITIDINE. [Concomitant]
     Active Substance: RANITIDINE
  22. FENOFIBRATE. [Concomitant]
     Active Substance: FENOFIBRATE
  23. FEXOFENADINE HCL [Concomitant]
     Active Substance: FEXOFENADINE HYDROCHLORIDE
  24. HYDROXYZINE HCL [Concomitant]
     Active Substance: HYDROXYZINE HYDROCHLORIDE
  25. TRIAMCINOLONE [Concomitant]
     Active Substance: TRIAMCINOLONE
  26. ATORVASTATIN [Concomitant]
     Active Substance: ATORVASTATIN
  27. BORIC ACID [Concomitant]
     Active Substance: BORIC ACID
  28. HYDROCHLOROTHIAZIDE. [Concomitant]
     Active Substance: HYDROCHLOROTHIAZIDE

REACTIONS (3)
  - Irregular breathing [Recovering/Resolving]
  - Sluggishness [Not Recovered/Not Resolved]
  - Wrong technique in product usage process [Unknown]

NARRATIVE: CASE EVENT DATE: 201608
